FAERS Safety Report 26015504 (Version 1)
Quarter: 2025Q4

REPORT INFORMATION
  Report Type: Spontaneous
  Country: US (occurrence: US)
  Receive Date: 20251109
  Receipt Date: 20251109
  Transmission Date: 20260117
  Serious: No
  Sender: ELI LILLY AND COMPANY
  Company Number: US-ELI_LILLY_AND_COMPANY-US202510034835

PATIENT
  Age: 75 Year
  Sex: Female

DRUGS (3)
  1. ZEPBOUND [Suspect]
     Active Substance: TIRZEPATIDE
     Indication: Product used for unknown indication
     Dosage: 2.5 MG, UNKNOWN
     Route: 065
  2. OXYCODONE [Concomitant]
     Active Substance: OXYCODONE
     Indication: Spinal operation
     Dosage: 5 MG, TID
     Dates: start: 20250522, end: 20251027
  3. GABAPENTIN [Concomitant]
     Active Substance: GABAPENTIN
     Indication: Spinal operation
     Dosage: 800 MG, TID
     Dates: start: 20250927, end: 20251027

REACTIONS (1)
  - Diarrhoea [Unknown]
